FAERS Safety Report 21610042 (Version 2)
Quarter: 2022Q4

REPORT INFORMATION
  Report Type: Report from Study
  Country: AU (occurrence: AU)
  Receive Date: 20221117
  Receipt Date: 20221127
  Transmission Date: 20230112
  Serious: Yes (Other)
  Sender: FDA-Public Use
  Company Number: AU-BIOGEN-2022BI01168638

PATIENT
  Age: 33 Year
  Sex: Female

DRUGS (5)
  1. VUMERITY [Suspect]
     Active Substance: DIROXIMEL FUMARATE
     Indication: Relapsing-remitting multiple sclerosis
     Route: 050
     Dates: start: 20220718
  2. VUMERITY [Suspect]
     Active Substance: DIROXIMEL FUMARATE
     Dosage: LAST DOSE OF VUMERITY WAS 03/NOV/2022
     Route: 050
     Dates: end: 20221103
  3. DIAMOX SEQUELS [Concomitant]
     Active Substance: ACETAZOLAMIDE
     Indication: Idiopathic intracranial hypertension
     Route: 050
  4. TOPAMAX [Concomitant]
     Active Substance: TOPIRAMATE
     Indication: Idiopathic intracranial hypertension
     Route: 050
  5. Norspan Patches [Concomitant]
     Indication: Idiopathic intracranial hypertension
     Route: 050

REACTIONS (2)
  - Abortion spontaneous [Recovered/Resolved]
  - Maternal exposure during pregnancy [Recovered/Resolved]

NARRATIVE: CASE EVENT DATE: 20221010
